FAERS Safety Report 24927323 (Version 2)
Quarter: 2025Q1

REPORT INFORMATION
  Report Type: Report from Study
  Country: US (occurrence: US)
  Receive Date: 20250205
  Receipt Date: 20250212
  Transmission Date: 20250409
  Serious: Yes (Hospitalization, Other)
  Sender: JOHNSON AND JOHNSON
  Company Number: US-JNJFOC-20241273856

PATIENT
  Age: 50 Year
  Sex: Female
  Weight: 58.967 kg

DRUGS (3)
  1. VELETRI [Suspect]
     Active Substance: EPOPROSTENOL
     Indication: Pulmonary hypertension
     Route: 042
  2. OPSUMIT [Concomitant]
     Active Substance: MACITENTAN
  3. WINREVAIR [Concomitant]
     Active Substance: SOTATERCEPT-CSRK

REACTIONS (6)
  - Catheter site pain [Unknown]
  - Thrombosis in device [Unknown]
  - Vascular device infection [Unknown]
  - Catheter site extravasation [Unknown]
  - Neoplasm malignant [Unknown]
  - Underdose [Unknown]

NARRATIVE: CASE EVENT DATE: 20250115
